FAERS Safety Report 9496670 (Version 1)
Quarter: 2013Q3

REPORT INFORMATION
  Report Type: Spontaneous
  Country: GR (occurrence: GR)
  Receive Date: 20130904
  Receipt Date: 20130904
  Transmission Date: 20140515
  Serious: Yes (Hospitalization, Other)
  Sender: FDA-Public Use
  Company Number: PHHY2013GR094275

PATIENT
  Age: 54 Year
  Sex: Male

DRUGS (7)
  1. SINTROM [Suspect]
     Dosage: 4 MG, UNK
  2. ENOXAPARIN [Suspect]
     Dosage: 12 MG, UNK
  3. SALOSPIR [Suspect]
     Dosage: 100 MG, UNK
  4. PLAVIX [Suspect]
     Dosage: 75 MG, UNK
  5. LIDOCAINE [Concomitant]
     Dosage: 2 %, UNK
  6. ADRENALINE [Concomitant]
     Dosage: 1:200000
  7. WARFARIN [Concomitant]
     Dosage: UNK UKN, UNK

REACTIONS (2)
  - Post procedural haemorrhage [Recovered/Resolved]
  - Wound [Unknown]
